FAERS Safety Report 25882353 (Version 1)
Quarter: 2025Q4

REPORT INFORMATION
  Report Type: Spontaneous
  Country: LB (occurrence: LB)
  Receive Date: 20251006
  Receipt Date: 20251006
  Transmission Date: 20260118
  Serious: Yes (Other)
  Sender: SANOFI AVENTIS
  Company Number: LB-DialogSolutions-SAAVPROD-PI827092-C1

PATIENT
  Age: 72 Year
  Sex: Male

DRUGS (5)
  1. DUPILUMAB [Suspect]
     Active Substance: DUPILUMAB
     Indication: Chronic actinic dermatitis
     Dosage: 600 MG, LOADING DOSE
  2. DUPILUMAB [Suspect]
     Active Substance: DUPILUMAB
     Dosage: 300 MG, Q15D
  3. DUPILUMAB [Suspect]
     Active Substance: DUPILUMAB
     Dosage: 300 MG, QM, MAINTENANCE DOSE RE-START
  4. HYDROXYCHLOROQUINE [Concomitant]
     Active Substance: HYDROXYCHLOROQUINE
     Indication: Chronic actinic dermatitis
     Dosage: UNK
     Route: 048
  5. METHOTREXATE [Concomitant]
     Active Substance: METHOTREXATE
     Indication: Chronic actinic dermatitis
     Dosage: UNK

REACTIONS (10)
  - Erythrodermic psoriasis [Recovered/Resolved]
  - Dermatitis psoriasiform [Recovered/Resolved]
  - Hyperkeratosis [Recovered/Resolved]
  - Erythema [Recovered/Resolved]
  - Skin plaque [Recovered/Resolved]
  - Dermatitis exfoliative generalised [Recovered/Resolved]
  - Acanthosis [Recovered/Resolved]
  - Parakeratosis [Recovered/Resolved]
  - Off label use [Recovered/Resolved]
  - Drug effective for unapproved indication [Recovered/Resolved]
